FAERS Safety Report 22050895 (Version 2)
Quarter: 2025Q2

REPORT INFORMATION
  Report Type: Spontaneous
  Country: AU (occurrence: AU)
  Receive Date: 20230301
  Receipt Date: 20250620
  Transmission Date: 20250717
  Serious: Yes (Death, Other)
  Sender: ORGANON
  Company Number: AU-ORGANON-O2302AUS002228

PATIENT
  Age: 50 Year
  Sex: Male

DRUGS (1)
  1. MIRTAZAPINE [Suspect]
     Active Substance: MIRTAZAPINE

REACTIONS (3)
  - Completed suicide [Fatal]
  - Agitation [Unknown]
  - Confusional state [Unknown]
